FAERS Safety Report 5785480-1 (Version None)
Quarter: 2008Q2

REPORT INFORMATION
  Report Type: 
  Country: None (occurrence: None)
  Receive Date: 20080605
  Receipt Date: 20080219
  Transmission Date: 20081010
  Serious: No
  Sender: FDA-Public Use
  Company Number: A0710439A

PATIENT
  Age: 48 Year
  Sex: Male

DRUGS (1)
  1. ALLI [Suspect]
     Dates: start: 20080208, end: 20080215

REACTIONS (1)
  - ABDOMINAL PAIN UPPER [None]
